FAERS Safety Report 7129576-0 (Version None)
Quarter: 2010Q4

REPORT INFORMATION
  Report Type: 
  Country: None (occurrence: None)
  Receive Date: 20101130
  Receipt Date: 20101123
  Transmission Date: 20110411
  Serious: Yes (Hospitalization, Other)
  Sender: FDA-Public Use
  Company Number: US-PFIZER INC-2010155711

PATIENT
  Sex: Female

DRUGS (5)
  1. ZOLOFT [Suspect]
     Indication: DEPRESSION
  2. CYMBALTA [Suspect]
     Indication: DEPRESSION
     Dosage: 60 MG, 1X/DAY
     Dates: end: 20090101
  3. RISPERIDONE [Concomitant]
  4. CARISOPRODOL [Concomitant]
  5. OXYCODONE AND ACETAMINOPHEN [Concomitant]

REACTIONS (10)
  - BLADDER INJURY [None]
  - CYSTITIS [None]
  - DRUG INEFFECTIVE [None]
  - HEPATIC CIRRHOSIS [None]
  - HEPATIC INFECTION [None]
  - HEPATITIS C [None]
  - KIDNEY INFECTION [None]
  - LIVER INJURY [None]
  - RENAL INJURY [None]
  - SUICIDE ATTEMPT [None]
